FAERS Safety Report 18322455 (Version 1)
Quarter: 2020Q3

REPORT INFORMATION
  Report Type: Report from Study
  Country: US (occurrence: US)
  Receive Date: 20200928
  Receipt Date: 20200928
  Transmission Date: 20201103
  Serious: Yes (Death, Hospitalization, Other)
  Sender: FDA-Public Use
  Company Number: US-MYLANLABS-2020M1070440

PATIENT
  Age: 89 Year
  Sex: Female
  Weight: 40.3 kg

DRUGS (2)
  1. SERTRALINE [Concomitant]
     Active Substance: SERTRALINE HYDROCHLORIDE
     Dosage: UNK
  2. CLOZAPINE. [Suspect]
     Active Substance: CLOZAPINE
     Indication: NEUROPSYCHIATRIC SYMPTOMS
     Dosage: 100 MILLIGRAM, BID
     Dates: start: 2015, end: 2019

REACTIONS (4)
  - Femoral neck fracture [Unknown]
  - Off label use [Unknown]
  - Death [Fatal]
  - Fall [Unknown]

NARRATIVE: CASE EVENT DATE: 2015
